FAERS Safety Report 10570272 (Version 1)
Quarter: 2014Q4

REPORT INFORMATION
  Report Type: Spontaneous
  Country: GB (occurrence: None)
  Receive Date: 20141105
  Receipt Date: 20141105
  Transmission Date: 20150529
  Serious: Yes (Life-Threatening, Hospitalization, Other)
  Sender: FDA-Public Use
  Company Number: AMAG201400398

PATIENT

DRUGS (2)
  1. FERAHEME [Suspect]
     Active Substance: FERUMOXYTOL NON-STOICHIOMETRIC MAGNETITE
     Indication: IMAGING PROCEDURE
     Dosage: SINGLE
     Route: 042
     Dates: start: 20130514, end: 20130514
  2. BUSCOPAN [Concomitant]
     Active Substance: BUTYLSCOPOLAMINE BROMIDE

REACTIONS (2)
  - Acute myocardial infarction [None]
  - Acute coronary syndrome [None]

NARRATIVE: CASE EVENT DATE: 20140912
